FAERS Safety Report 5936420-3 (Version None)
Quarter: 2008Q4

REPORT INFORMATION
  Report Type: 
  Country: None (occurrence: None)
  Receive Date: 20081030
  Receipt Date: 20081022
  Transmission Date: 20090506
  Serious: Yes (Other)
  Sender: FDA-Public Use
  Company Number: DE-GILEAD-2008-0018145

PATIENT
  Sex: Male
  Weight: 71 kg

DRUGS (11)
  1. VIREAD [Suspect]
     Indication: HEPATITIS B VIRUS TEST
     Route: 048
     Dates: start: 20070921, end: 20080612
  2. HEPSERA [Concomitant]
     Indication: HEPATITIS B VIRUS TEST
  3. ZEFFIX [Concomitant]
     Indication: HEPATITIS B VIRUS TEST
     Dates: start: 20050809
  4. PROGRAF [Concomitant]
     Indication: PROPHYLAXIS AGAINST TRANSPLANT REJECTION
     Dates: start: 20040604
  5. CELLSEPT [Concomitant]
     Indication: PROPHYLAXIS AGAINST TRANSPLANT REJECTION
     Dates: start: 20040604
  6. URSO FALK [Concomitant]
     Dates: start: 20040604
  7. ROCALTROL [Concomitant]
     Indication: OSTEOPOROSIS
     Dates: start: 20070606
  8. ACETYLSALICYLIC ACID SRT [Concomitant]
     Indication: MYOCARDIAL INFARCTION
     Dates: start: 20040610
  9. METOPROLOL SUCCINATE [Concomitant]
     Indication: HYPERTONIA
     Dates: start: 20070208
  10. ISOSORBIDE DINITRATE [Concomitant]
     Indication: ANGINA PECTORIS
     Dates: start: 20040608
  11. CIBACEN [Concomitant]
     Indication: HYPERTONIA
     Dates: start: 20040608

REACTIONS (3)
  - ARTHRALGIA [None]
  - MYALGIA [None]
  - RENAL FAILURE [None]
